FAERS Safety Report 5503060-X (Version None)
Quarter: 2007Q4

REPORT INFORMATION
  Report Type: 
  Country: None (occurrence: None)
  Receive Date: 20071031
  Receipt Date: 20071029
  Transmission Date: 20080405
  Serious: Yes (Other)
  Sender: FDA-Public Use
  Company Number: US-BRISTOL-MYERS SQUIBB COMPANY-13960158

PATIENT
  Age: 68 Year
  Sex: Female

DRUGS (1)
  1. CISPLATIN [Suspect]
     Indication: THYMOMA MALIGNANT

REACTIONS (1)
  - COLITIS ISCHAEMIC [None]
